FAERS Safety Report 25413702 (Version 1)
Quarter: 2025Q2

REPORT INFORMATION
  Report Type: Spontaneous
  Country: US (occurrence: US)
  Receive Date: 20250609
  Receipt Date: 20250609
  Transmission Date: 20250717
  Serious: Yes (Other)
  Sender: ALEXION PHARMACEUTICALS
  Company Number: US-AstraZeneca-CH-00884570A

PATIENT

DRUGS (1)
  1. BREZTRI [Suspect]
     Active Substance: BUDESONIDE\FORMOTEROL\GLYCOPYRROLATE
     Indication: Chronic obstructive pulmonary disease
     Route: 065

REACTIONS (10)
  - Rheumatoid arthritis [Unknown]
  - Visual impairment [Unknown]
  - Head discomfort [Unknown]
  - Dyspnoea [Unknown]
  - Malaise [Unknown]
  - Bradykinesia [Unknown]
  - Speech disorder [Unknown]
  - Gait disturbance [Unknown]
  - Product dose omission issue [Unknown]
  - Intentional product misuse [Unknown]
